FAERS Safety Report 5399959-8 (Version None)
Quarter: 2007Q3

REPORT INFORMATION
  Report Type: 
  Country: None (occurrence: None)
  Receive Date: 20070727
  Receipt Date: 20070727
  Transmission Date: 20080115
  Serious: Yes (Other)
  Sender: FDA-Public Use
  Company Number: None

PATIENT
  Sex: Female
  Weight: 90.7194 kg

DRUGS (1)
  1. ZYVOX [Suspect]
     Indication: DEVICE RELATED INFECTION
     Dosage: 600MG EVERY 12 HRS IV
     Route: 042
     Dates: start: 20070705, end: 20070708

REACTIONS (3)
  - PRURITUS [None]
  - RASH [None]
  - TONGUE DISORDER [None]
